FAERS Safety Report 9126888 (Version 1)
Quarter: 2013Q1

REPORT INFORMATION
  Report Type: Spontaneous
  Country: US (occurrence: US)
  Receive Date: 20130122
  Receipt Date: 20130122
  Transmission Date: 20140127
  Serious: No
  Sender: FDA-Public Use
  Company Number: US-009507513-1301USA007947

PATIENT
  Age: 67 None
  Sex: Male
  Weight: 104.31 kg

DRUGS (9)
  1. VICTRELIS [Suspect]
     Dosage: 4 DF, TID
     Route: 048
  2. PEGINTRON [Suspect]
  3. RIBAVIRIN [Suspect]
  4. KLONOPIN [Concomitant]
  5. LISINOPRIL [Concomitant]
  6. OMEPRAZOLE [Concomitant]
  7. RANITIDINE [Concomitant]
  8. WELLBUTRIN [Concomitant]
  9. CELEXA [Concomitant]

REACTIONS (1)
  - Blister [Unknown]
